FAERS Safety Report 18627482 (Version 1)
Quarter: 2020Q4

REPORT INFORMATION
  Report Type: Spontaneous
  Country: US (occurrence: US)
  Receive Date: 20201217
  Receipt Date: 20201217
  Transmission Date: 20210114
  Serious: Yes (Other)
  Sender: FDA-Public Use
  Company Number: US-AXELLIA-003585

PATIENT
  Age: 73 Year
  Sex: Male
  Weight: 94.5 kg

DRUGS (1)
  1. VANCOMYCIN [Suspect]
     Active Substance: VANCOMYCIN
     Indication: WOUND
     Dosage: STRENGTH 1500 MG(3-500 MG VIALS), ONCE
     Route: 042
     Dates: start: 20200207, end: 20200207

REACTIONS (1)
  - Drug hypersensitivity [Recovering/Resolving]

NARRATIVE: CASE EVENT DATE: 20200207
